FAERS Safety Report 15124657 (Version 1)
Quarter: 2018Q3

REPORT INFORMATION
  Report Type: Spontaneous
  Country: US (occurrence: US)
  Receive Date: 20180710
  Receipt Date: 20180710
  Transmission Date: 20181010
  Serious: No
  Sender: FDA-Public Use
  Company Number: US-PFIZER INC-2018275733

PATIENT
  Sex: Male

DRUGS (1)
  1. LYRICA [Suspect]
     Active Substance: PREGABALIN
     Dosage: 75 MG, 2X/DAY (FOR 2 DAYS)
     Dates: start: 20180704, end: 20180705

REACTIONS (4)
  - Vision blurred [Unknown]
  - Dizziness [Unknown]
  - Gait disturbance [Unknown]
  - Pain [Unknown]
